FAERS Safety Report 5049007-4 (Version None)
Quarter: 2006Q3

REPORT INFORMATION
  Report Type: 
  Country: None (occurrence: None)
  Receive Date: 20060712
  Receipt Date: 20051209
  Transmission Date: 20061208
  Serious: No
  Sender: FDA-Public Use
  Company Number: US-GLAXOSMITHKLINE-A0585270A

PATIENT
  Age: 45 Year
  Sex: Male

DRUGS (4)
  1. IMITREX [Suspect]
     Indication: MIGRAINE
     Dosage: 75MG PER DAY
     Route: 048
  2. PRILOSEC [Concomitant]
  3. EXCEDRIN (MIGRAINE) [Concomitant]
  4. TUMS [Concomitant]

REACTIONS (3)
  - ALOPECIA [None]
  - ARTHRITIS [None]
  - DRUG ADMINISTRATION ERROR [None]
